FAERS Safety Report 4524027-4 (Version None)
Quarter: 2004Q4

REPORT INFORMATION
  Report Type: 
  Country: None (occurrence: None)
  Receive Date: 20041209
  Receipt Date: 20041123
  Transmission Date: 20050328
  Serious: Yes (Hospitalization)
  Sender: FDA-Public Use
  Company Number: A01200405896

PATIENT
  Age: 60 Year
  Sex: Female

DRUGS (1)
  1. (OXALIPLATIN)-SOLUTION [Suspect]
     Indication: CHEMOTHERAPY
     Dosage: 200 MG OTHER, INTRAVENOUS NOS
     Route: 042
     Dates: start: 20041019, end: 20041019

REACTIONS (2)
  - HYPOTENSION [None]
  - SUPRAVENTRICULAR TACHYCARDIA [None]
